FAERS Safety Report 11665450 (Version 1)
Quarter: 2015Q4

REPORT INFORMATION
  Report Type: Spontaneous
  Country: US (occurrence: US)
  Receive Date: 20151027
  Receipt Date: 20151027
  Transmission Date: 20160304
  Serious: No
  Sender: FDA-Public Use
  Company Number: US-ELI_LILLY_AND_COMPANY-US200912005363

PATIENT
  Age: 70 Year
  Sex: Female
  Weight: 47.17 kg

DRUGS (1)
  1. FORTEO [Suspect]
     Active Substance: TERIPARATIDE
     Indication: OSTEOPOROSIS
     Dosage: UNK, DAILY (1/D)
     Route: 065
     Dates: start: 2009, end: 2009

REACTIONS (7)
  - Heart rate increased [Unknown]
  - Heart rate irregular [Unknown]
  - Anxiety [Unknown]
  - Ocular discomfort [Unknown]
  - Movement disorder [Unknown]
  - Dysphonia [Not Recovered/Not Resolved]
  - Dizziness [Unknown]

NARRATIVE: CASE EVENT DATE: 2009
